FAERS Safety Report 11378001 (Version 1)
Quarter: 2015Q3

REPORT INFORMATION
  Report Type: Spontaneous
  Country: US (occurrence: US)
  Receive Date: 20150811
  Receipt Date: 20150811
  Transmission Date: 20151125
  Serious: No
  Sender: FDA-Public Use
  Company Number: US-ELI_LILLY_AND_COMPANY-US200912003876

PATIENT
  Age: 58 Year
  Sex: Female

DRUGS (5)
  1. HUMULIN N [Suspect]
     Active Substance: INSULIN HUMAN
     Dosage: 32 U, EACH EVENING
     Dates: start: 20091215
  2. NOVOLOG [Concomitant]
     Active Substance: INSULIN ASPART
     Dosage: 18 U, UNK
     Dates: start: 2007
  3. NOVOLOG [Concomitant]
     Active Substance: INSULIN ASPART
     Dosage: 6 U, EACH EVENING
     Dates: start: 2007
  4. HUMULIN N [Suspect]
     Active Substance: INSULIN HUMAN
     Indication: DIABETES MELLITUS
     Dosage: 20 U, DAILY (1/D)
     Dates: start: 20091215
  5. NOVOLOG [Concomitant]
     Active Substance: INSULIN ASPART
     Dosage: 18 U, EACH MORNING
     Dates: start: 2007

REACTIONS (2)
  - Nervousness [Unknown]
  - Wrong technique in product usage process [Unknown]

NARRATIVE: CASE EVENT DATE: 20091216
